FAERS Safety Report 10085642 (Version 1)
Quarter: 2014Q2

REPORT INFORMATION
  Report Type: Spontaneous
  Country: US (occurrence: None)
  Receive Date: 20140416
  Receipt Date: 20140416
  Transmission Date: 20141212
  Serious: Yes (Other)
  Sender: FDA-Public Use
  Company Number: 2014P1002915

PATIENT
  Age: 76 Year
  Sex: Female
  Weight: 78.93 kg

DRUGS (13)
  1. ALENDRONE SODIUM TABLETS 70 MG [Suspect]
     Indication: OSTEOPOROSIS
     Dates: start: 20140326
  2. PREDNISONE TABLETS [Suspect]
     Route: 048
     Dates: start: 2012
  3. CELEBREX [Suspect]
  4. LOSARTAN [Concomitant]
  5. POTASSIUM [Concomitant]
  6. LASIX [Concomitant]
  7. WARFARIN [Concomitant]
  8. CARVEDILOL [Concomitant]
  9. ALLOPURINOL [Concomitant]
  10. CALCIUM [Concomitant]
  11. TYLENOL [Concomitant]
  12. VALIUM [Concomitant]
  13. MIRALAX [Concomitant]

REACTIONS (3)
  - Renal disorder [None]
  - Cardiac failure congestive [None]
  - Constipation [None]
